FAERS Safety Report 21244170 (Version 3)
Quarter: 2022Q3

REPORT INFORMATION
  Report Type: Report from Study
  Country: US (occurrence: US)
  Receive Date: 20220823
  Receipt Date: 20220905
  Transmission Date: 20221026
  Serious: Yes (Other)
  Sender: FDA-Public Use
  Company Number: NVSC2022US185279

PATIENT
  Age: 57 Year
  Sex: Female

DRUGS (1)
  1. KESIMPTA [Suspect]
     Active Substance: OFATUMUMAB
     Indication: Multiple sclerosis
     Dosage: 20 GTT (DROP), QMO
     Route: 058
     Dates: start: 20220701, end: 20220828

REACTIONS (6)
  - Loss of consciousness [Recovered/Resolved]
  - Affect lability [Not Recovered/Not Resolved]
  - Balance disorder [Not Recovered/Not Resolved]
  - Feeling abnormal [Not Recovered/Not Resolved]
  - Limb discomfort [Not Recovered/Not Resolved]
  - Feeling hot [Recovered/Resolved]

NARRATIVE: CASE EVENT DATE: 20220701
